FAERS Safety Report 4275097-2 (Version None)
Quarter: 2004Q1

REPORT INFORMATION
  Report Type: 
  Country: None (occurrence: None)
  Receive Date: 20040116
  Receipt Date: 20040112
  Transmission Date: 20041129
  Serious: Yes (Hospitalization)
  Sender: FDA-Public Use
  Company Number: FR-JNJFOC-20040101643

PATIENT
  Age: 63 Year
  Sex: Female

DRUGS (4)
  1. DURAGESIC [Suspect]
     Indication: DRUG USE FOR UNKNOWN INDICATION
     Dosage: TRANSDERMAL
     Route: 062
  2. MORPHINE SULFATE [Suspect]
     Indication: DRUG USE FOR UNKNOWN INDICATION
     Dosage: ORAL
     Route: 048
  3. IRESSA [Suspect]
     Indication: LUNG NEOPLASM MALIGNANT
     Dosage: 250 MG, 1 IN 1 DAY; ORAL
     Route: 048
     Dates: start: 20030505, end: 20030720
  4. ACETAMINOPHEN [Suspect]
     Indication: DRUG USE FOR UNKNOWN INDICATION
     Dosage: ORAL
     Route: 048

REACTIONS (10)
  - ACNE [None]
  - DERMATITIS EXFOLIATIVE [None]
  - DIARRHOEA [None]
  - DISEASE PROGRESSION [None]
  - DRUG INTERACTION [None]
  - DRY SKIN [None]
  - MUSCLE SPASMS [None]
  - PAIN [None]
  - PRURITUS [None]
  - VOMITING [None]
